FAERS Safety Report 9824969 (Version 1)
Quarter: 2014Q1

REPORT INFORMATION
  Report Type: Spontaneous
  Country: GB (occurrence: GB)
  Receive Date: 20140117
  Receipt Date: 20140117
  Transmission Date: 20141002
  Serious: Yes (Other)
  Sender: FDA-Public Use
  Company Number: GB-AMGEN-GBRSP2014002517

PATIENT
  Age: 77 Year
  Sex: Female
  Weight: 69.85 kg

DRUGS (2)
  1. PROLIA [Suspect]
     Indication: OSTEOPOROSIS
     Dosage: UNK
     Route: 051
     Dates: start: 20130705
  2. PREDNISOLONE [Concomitant]

REACTIONS (3)
  - Bladder discomfort [Recovered/Resolved with Sequelae]
  - Bladder disorder [Recovered/Resolved with Sequelae]
  - Cystitis [Recovered/Resolved with Sequelae]
